FAERS Safety Report 20795816 (Version 1)
Quarter: 2022Q2

REPORT INFORMATION
  Report Type: Spontaneous
  Country: IR (occurrence: IR)
  Receive Date: 20220506
  Receipt Date: 20220506
  Transmission Date: 20220721
  Serious: Yes (Hospitalization, Other)
  Sender: FDA-Public Use
  Company Number: IR-NOVARTISPH-NVSC2022IR100704

PATIENT
  Age: 16 Year
  Sex: Male

DRUGS (4)
  1. CYCLOSPORINE [Suspect]
     Active Substance: CYCLOSPORINE
     Indication: Immunosuppression
     Dosage: 150 MG, QD
     Route: 065
  2. CYCLOSPORINE [Suspect]
     Active Substance: CYCLOSPORINE
     Indication: Renal transplant
  3. MYCOPHENOLATE MOFETIL [Concomitant]
     Active Substance: MYCOPHENOLATE MOFETIL
     Indication: Product used for unknown indication
     Dosage: 1500 MG
     Route: 065
  4. PREDNISONE [Concomitant]
     Active Substance: PREDNISONE
     Indication: Product used for unknown indication
     Dosage: 5 MG, EVERY OTHER DAY
     Route: 065

REACTIONS (5)
  - COVID-19 [Recovered/Resolved]
  - Pyrexia [Recovered/Resolved]
  - Malaise [Recovered/Resolved]
  - Diarrhoea [Recovering/Resolving]
  - Myalgia [Recovered/Resolved]
